FAERS Safety Report 4852243-0 (Version None)
Quarter: 2005Q4

REPORT INFORMATION
  Report Type: 
  Country: None (occurrence: None)
  Receive Date: 20051213
  Receipt Date: 20050414
  Transmission Date: 20060501
  Serious: Yes (Hospitalization)
  Sender: FDA-Public Use
  Company Number: 200511328FR

PATIENT
  Age: 58 Year
  Sex: Female

DRUGS (7)
  1. KETEK [Suspect]
     Indication: BRONCHITIS ACUTE
     Route: 048
     Dates: start: 20050220, end: 20050228
  2. TARKA [Suspect]
     Route: 048
     Dates: end: 20050304
  3. ELISOR [Concomitant]
  4. HYPERIUM [Concomitant]
  5. NIFEDIPINE [Concomitant]
  6. TENSTATEN [Concomitant]
  7. INSULINE [Concomitant]

REACTIONS (4)
  - BRADYCARDIA [None]
  - DRUG INTERACTION [None]
  - HYPERKALAEMIA [None]
  - MYALGIA [None]
